FAERS Safety Report 9626134 (Version 2)
Quarter: 2013Q4

REPORT INFORMATION
  Report Type: Spontaneous
  Country: JP (occurrence: JP)
  Receive Date: 20131016
  Receipt Date: 20131107
  Transmission Date: 20140711
  Serious: Yes (Hospitalization)
  Sender: FDA-Public Use
  Company Number: JP-SA-2013SA102753

PATIENT
  Age: 70 Year
  Sex: Male

DRUGS (3)
  1. WARFARIN SODIUM [Suspect]
     Indication: PRODUCT USED FOR UNKNOWN INDICATION
     Route: 065
     Dates: start: 2006, end: 2013
  2. ASPIRIN [Suspect]
     Indication: PRODUCT USED FOR UNKNOWN INDICATION
     Route: 065
     Dates: start: 2006, end: 2013
  3. PLAVIX [Suspect]
     Indication: CARDIAC DISORDER
     Route: 048
     Dates: start: 2011, end: 2013

REACTIONS (7)
  - Muscle haemorrhage [Recovered/Resolved]
  - International normalised ratio increased [Recovered/Resolved]
  - Pain in extremity [Recovered/Resolved]
  - Sensory disturbance [Recovered/Resolved]
  - Muscular weakness [Recovered/Resolved]
  - Inflammation [Recovered/Resolved]
  - Anaemia [Recovered/Resolved]
